FAERS Safety Report 5164464-0 (Version None)
Quarter: 2006Q4

REPORT INFORMATION
  Report Type: 
  Country: None (occurrence: None)
  Receive Date: 20061205
  Receipt Date: 20061123
  Transmission Date: 20070319
  Serious: Yes (Life-Threatening, Hospitalization)
  Sender: FDA-Public Use
  Company Number: US-ROCHE-472395

PATIENT
  Age: 42 Year
  Sex: Female

DRUGS (24)
  1. PEGYLATED INTERFERON NOS [Suspect]
     Route: 065
     Dates: start: 20050520, end: 20051127
  2. NM283 [Suspect]
     Dosage: DOSE: 800 MG, NO FREQUENCY PROVIDED
     Route: 065
     Dates: start: 20050513, end: 20051125
  3. CARISOPRODOL [Concomitant]
  4. CEFOTAXIME SODIUM [Concomitant]
     Dates: start: 20051130, end: 20051203
  5. BENADRYL [Concomitant]
     Dates: start: 20051130, end: 20051203
  6. VICODIN [Concomitant]
     Dates: start: 20061130, end: 20061130
  7. CATAPRES [Concomitant]
  8. POTASSIUM ACETATE [Concomitant]
     Dates: start: 20051202, end: 20051203
  9. ZITHROMAX [Concomitant]
     Dates: start: 20051203, end: 20051205
  10. PREDNISONE TAB [Concomitant]
  11. TEMAZEPAM [Concomitant]
     Dates: start: 20051203, end: 20051203
  12. HALOPERIDOL DECANOATE [Concomitant]
     Dates: start: 20051130, end: 20051203
  13. FENTANYL [Concomitant]
  14. PROPOXYPHENE NAPSYLATE 100 [Concomitant]
  15. METHYLPREDNISOLONE [Concomitant]
  16. DIPHENHYDRAMINE HCL [Concomitant]
  17. IPRATROPIUM BROMIDE [Concomitant]
  18. ACETAMINOPHEN [Concomitant]
  19. CLONIDINE [Concomitant]
  20. AZITHROMYCIN [Concomitant]
  21. PREDNISOLONE [Concomitant]
  22. LORAZEPAM [Concomitant]
     Dates: start: 20051130, end: 20051203
  23. PREMARIN [Concomitant]
  24. DARVOCET [Concomitant]

REACTIONS (4)
  - DEPRESSION [None]
  - HYPOKALAEMIA [None]
  - INTENTIONAL OVERDOSE [None]
  - SUICIDE ATTEMPT [None]
